FAERS Safety Report 5036713-0 (Version None)
Quarter: 2006Q2

REPORT INFORMATION
  Report Type: 
  Country: None (occurrence: None)
  Receive Date: 20060623
  Receipt Date: 20060616
  Transmission Date: 20061013
  Serious: Yes (Hospitalization)
  Sender: FDA-Public Use
  Company Number: 224495

PATIENT
  Sex: Female

DRUGS (3)
  1. RAPTIVA [Suspect]
  2. SULFASALAZINE [Concomitant]
  3. INFLIXIMAB (INFLIXIMAB) [Concomitant]

REACTIONS (5)
  - ARTHROPATHY [None]
  - CRYPTOCOCCOSIS [None]
  - DERMATITIS EXFOLIATIVE [None]
  - PNEUMONIA FUNGAL [None]
  - PSORIASIS [None]
